FAERS Safety Report 8824081 (Version 3)
Quarter: 2013Q1

REPORT INFORMATION
  Report Type: Spontaneous
  Country: US (occurrence: US)
  Receive Date: 20121003
  Receipt Date: 20130110
  Transmission Date: 20140127
  Serious: No
  Sender: FDA-Public Use
  Company Number: US-009507513-1209USA010821

PATIENT
  Sex: Female

DRUGS (12)
  1. PEGINTRON [Suspect]
     Indication: HEPATITIS C
     Dosage: 120 MICROGRAM, QW
     Route: 058
  2. TELAPREVIR [Suspect]
  3. RIBAPAK [Suspect]
  4. PREDNISONE [Concomitant]
  5. BONIVA [Concomitant]
  6. LITHIUM [Concomitant]
  7. POTASSIUM CHLORIDE [Concomitant]
  8. TRAMADOL HYDROCHLORIDE [Concomitant]
  9. VENLAFAXINE HYDROCHLORIDE [Concomitant]
  10. PROMETHAZINE [Concomitant]
  11. OMEPRAZOLE [Concomitant]
  12. BYSTOLIC [Concomitant]

REACTIONS (4)
  - Gait disturbance [Unknown]
  - Coordination abnormal [Unknown]
  - Fatigue [Unknown]
  - Memory impairment [Unknown]
